FAERS Safety Report 9431170 (Version 1)
Quarter: 2013Q3

REPORT INFORMATION
  Report Type: Spontaneous
  Country: US (occurrence: US)
  Receive Date: 20130730
  Receipt Date: 20130730
  Transmission Date: 20140515
  Serious: Yes (Hospitalization)
  Sender: FDA-Public Use
  Company Number: US-ELI_LILLY_AND_COMPANY-US201307007315

PATIENT
  Sex: Female
  Weight: 136.5 kg

DRUGS (9)
  1. INSULIN HUMAN [Suspect]
     Indication: TYPE 2 DIABETES MELLITUS
  2. HUMALOG LISPRO [Suspect]
     Dosage: UNK, TID
  3. WARFARIN [Concomitant]
     Dosage: 4 MG, OTHER
  4. BISOPROLOL [Concomitant]
     Dosage: UNK, BID
  5. LEVOTHYROXINE [Concomitant]
  6. SIMVASTATIN [Concomitant]
     Dosage: UNK, QD
  7. ASPIRIN [Concomitant]
     Dosage: 81 MG, UNKNOWN
  8. FUROSEMIDE [Concomitant]
     Dosage: 2 DF, EACH MORNING
  9. POTASSIUM [Concomitant]
     Dosage: 2 DF, QD

REACTIONS (11)
  - Urinary bladder haemorrhage [Unknown]
  - Bladder pain [Unknown]
  - Cystocele [Unknown]
  - Constipation [Unknown]
  - Arthropathy [Unknown]
  - Pain [Unknown]
  - Memory impairment [Unknown]
  - Vision blurred [Unknown]
  - Blood glucose increased [Unknown]
  - Blood glucose decreased [Recovered/Resolved]
  - Obesity [Unknown]
